FAERS Safety Report 5121133-0 (Version None)
Quarter: 2006Q4

REPORT INFORMATION
  Report Type: 
  Country: None (occurrence: None)
  Receive Date: 20061002
  Receipt Date: 20060919
  Transmission Date: 20070319
  Serious: Yes (Hospitalization)
  Sender: FDA-Public Use
  Company Number: 2006114211

PATIENT
  Age: 81 Year
  Sex: Male

DRUGS (2)
  1. LYRICA [Suspect]
     Indication: NEURALGIA
     Dosage: 125 MG (1 D), ORAL
     Route: 048
     Dates: start: 20060630, end: 20060702
  2. THIOCTACID (THIOCTIC ACID) [Concomitant]

REACTIONS (4)
  - CONFUSIONAL STATE [None]
  - GAIT DISTURBANCE [None]
  - HYPOGLYCAEMIA [None]
  - RENAL FUNCTION TEST ABNORMAL [None]
